FAERS Safety Report 24312659 (Version 2)
Quarter: 2024Q3

REPORT INFORMATION
  Report Type: Spontaneous
  Country: GB (occurrence: GB)
  Receive Date: 20240912
  Receipt Date: 20240924
  Transmission Date: 20241017
  Serious: Yes (Disabling, Other)
  Sender: PERRIGO
  Company Number: None

PATIENT
  Age: 23 Year
  Sex: Female

DRUGS (1)
  1. IBUPROFEN [Suspect]
     Active Substance: IBUPROFEN
     Indication: Pain
     Dosage: 200 MG
     Route: 065

REACTIONS (3)
  - Hyperhidrosis [Recovering/Resolving]
  - Somnolence [Recovering/Resolving]
  - Loss of consciousness [Unknown]
